FAERS Safety Report 5001574-2 (Version None)
Quarter: 2006Q2

REPORT INFORMATION
  Report Type: 
  Country: None (occurrence: None)
  Receive Date: 20060515
  Receipt Date: 20060504
  Transmission Date: 20061013
  Serious: Yes (Death)
  Sender: FDA-Public Use
  Company Number: US-JNJFOC-20060501306

PATIENT
  Sex: Female

DRUGS (22)
  1. REMICADE [Suspect]
     Indication: RHEUMATOID ARTHRITIS
     Route: 042
  2. METHOTREXATE [Concomitant]
  3. LANOXIN [Concomitant]
  4. ASPIRIN [Concomitant]
  5. KLOR-CON [Concomitant]
  6. TEMAZEPAM [Concomitant]
  7. QUINAGLUTE [Concomitant]
  8. SULINDAC [Concomitant]
  9. PREDNISONE TAB [Concomitant]
  10. PROPOXYPHENE [Concomitant]
     Dosage: 2-4 TABLETS DAILY
  11. FOLIC ACID [Concomitant]
  12. CALCIUM GLUCONATE [Concomitant]
  13. ZOCOR [Concomitant]
  14. ASCORBIC ACID [Concomitant]
  15. MULTI-VITAMIN [Concomitant]
  16. MULTI-VITAMIN [Concomitant]
  17. MULTI-VITAMIN [Concomitant]
  18. MULTI-VITAMIN [Concomitant]
  19. MULTI-VITAMIN [Concomitant]
  20. MULTI-VITAMIN [Concomitant]
  21. MULTI-VITAMIN [Concomitant]
  22. MULTI-VITAMIN [Concomitant]

REACTIONS (1)
  - PANCREATIC CARCINOMA [None]
